FAERS Safety Report 4481207-4 (Version None)
Quarter: 2004Q3

REPORT INFORMATION
  Report Type: 
  Country: None (occurrence: None)
  Receive Date: 20040923
  Receipt Date: 20040806
  Transmission Date: 20050211
  Serious: No
  Sender: FDA-Public Use
  Company Number: USA040155918

PATIENT
  Age: 66 Year
  Sex: Female
  Weight: 89 kg

DRUGS (15)
  1. FORTEO [Suspect]
     Indication: OSTEOPOROSIS
     Dates: start: 20031201
  2. PREVACID [Concomitant]
  3. VITAMIN B-12 [Concomitant]
  4. METHOTREXATE [Concomitant]
  5. PREDNISONE [Concomitant]
  6. LORAZEPAM [Concomitant]
  7. TRAZODONE HCL [Concomitant]
  8. METHOCARBAMOL [Concomitant]
  9. EFFEXOR [Concomitant]
  10. PREMARIN [Concomitant]
  11. ELMIRON [Concomitant]
  12. BENADRYL [Concomitant]
  13. ADVAIR [Concomitant]
  14. COMBIVIR [Concomitant]
  15. DURAGESIC [Concomitant]

REACTIONS (9)
  - ARTHRALGIA [None]
  - CHEST WALL PAIN [None]
  - HEADACHE [None]
  - HYPERHIDROSIS [None]
  - LIGAMENT DISORDER [None]
  - MUSCLE CRAMP [None]
  - PAIN IN EXTREMITY [None]
  - ROAD TRAFFIC ACCIDENT [None]
  - WHIPLASH INJURY [None]
